FAERS Safety Report 8788328 (Version 1)
Quarter: 2012Q4

REPORT INFORMATION
  Report Type: Report from Study
  Country: US (occurrence: US)
  Receive Date: 20120914
  Receipt Date: 20120914
  Transmission Date: 20130627
  Serious: No
  Sender: FDA-Public Use
  Company Number: US-VERTEX PHARMACEUTICAL INC.-AE-2012-011764

PATIENT
  Age: 60 Year
  Sex: Female

DRUGS (14)
  1. INCIVEK [Suspect]
     Indication: HEPATITIS C
     Route: 048
  2. PEGASYS [Concomitant]
     Indication: HEPATITIS C
  3. RIBAVIRIN [Concomitant]
  4. AMLODIPINE [Concomitant]
  5. ULTRAM [Concomitant]
  6. ALBUTEROL [Concomitant]
  7. ALLEGRA [Concomitant]
  8. CALCIUM [Concomitant]
  9. CELEXA [Concomitant]
  10. MULTIVITAMIN [Concomitant]
  11. NASONEX [Concomitant]
  12. PROPRANOLOL [Concomitant]
  13. TRAMADOL HCL [Concomitant]
  14. TRAZODONE [Concomitant]

REACTIONS (1)
  - Drug ineffective [Unknown]
